FAERS Safety Report 5509025-6 (Version None)
Quarter: 2007Q4

REPORT INFORMATION
  Report Type: 
  Country: None (occurrence: None)
  Receive Date: 20071105
  Receipt Date: 20071024
  Transmission Date: 20080405
  Serious: Yes (Death, Life-Threatening, Hospitalization)
  Sender: FDA-Public Use
  Company Number: 2007-01089

PATIENT
  Age: 78 Year
  Sex: Female

DRUGS (3)
  1. VELCADE (VELCADE) VELCADE (BORTEZOMIB) INJECTION [Suspect]
     Indication: MULTIPLE MYELOMA
     Dosage: 2.30 MG, INTRAVENOUS
     Route: 042
     Dates: start: 20070323, end: 20070406
  2. DEXAMETHASONE [Suspect]
     Indication: MULTIPLE MYELOMA
     Dosage: 20.00 MG, ORAL
     Route: 048
     Dates: start: 20070323, end: 20070402
  3. ROMIDEPSIN(DEPSIPEPTIDE) POWDER (EXCEPT [DPO]) [Suspect]
     Indication: MULTIPLE MYELOMA
     Dosage: 21.00 MG, INTRAVENOUS
     Route: 042
     Dates: start: 20070323, end: 20070406

REACTIONS (7)
  - AMYLOIDOSIS [None]
  - CEREBRAL HAEMORRHAGE [None]
  - DISEASE PROGRESSION [None]
  - FEBRILE INFECTION [None]
  - HYPERVISCOSITY SYNDROME [None]
  - INFUSION SITE INFECTION [None]
  - THROMBOCYTOPENIA [None]
